FAERS Safety Report 23428541 (Version 1)
Quarter: 2024Q1

REPORT INFORMATION
  Report Type: Report from Study
  Country: CR (occurrence: CR)
  Receive Date: 20240122
  Receipt Date: 20240122
  Transmission Date: 20240409
  Serious: Yes (Life-Threatening, Hospitalization)
  Sender: FDA-Public Use
  Company Number: CR-002147023-NVSC2023CR215428

PATIENT
  Age: 47 Year
  Sex: Male

DRUGS (1)
  1. SECUKINUMAB [Suspect]
     Active Substance: SECUKINUMAB
     Indication: Psoriatic arthropathy
     Dosage: 150 MG, QMO
     Route: 058
     Dates: start: 20231002

REACTIONS (13)
  - Pneumonia bacterial [Recovering/Resolving]
  - Decreased immune responsiveness [Recovering/Resolving]
  - Psoriasis [Unknown]
  - Pruritus [Unknown]
  - Erythema [Unknown]
  - Acne [Unknown]
  - Scratch [Unknown]
  - Skin haemorrhage [Unknown]
  - Skin laceration [Unknown]
  - Influenza like illness [Recovered/Resolved]
  - Depressed mood [Recovered/Resolved]
  - Chills [Recovered/Resolved]
  - Rash macular [Recovering/Resolving]

NARRATIVE: CASE EVENT DATE: 20231002
